FAERS Safety Report 11625677 (Version 5)
Quarter: 2018Q4

REPORT INFORMATION
  Report Type: Spontaneous
  Country: US (occurrence: US)
  Receive Date: 20151013
  Receipt Date: 20181018
  Transmission Date: 20190204
  Serious: Yes (Disabling, Other)
  Sender: FDA-Public Use
  Company Number: US-009507513-1510USA004908

PATIENT
  Sex: Female
  Weight: 102.4 kg

DRUGS (4)
  1. IMPLANON [Suspect]
     Active Substance: ETONOGESTREL
     Dosage: UNK
     Dates: end: 20120110
  2. IMPLANON [Suspect]
     Active Substance: ETONOGESTREL
     Indication: CONTRACEPTION
     Dosage: 1 DF, UNKNOWN
     Route: 059
     Dates: start: 20120206
  3. XANAX [Concomitant]
     Active Substance: ALPRAZOLAM
     Indication: PRODUCT USED FOR UNKNOWN INDICATION
     Dosage: 1 MG, TID
     Route: 048
  4. PERCOCET [Concomitant]
     Active Substance: ACETAMINOPHEN\OXYCODONE HYDROCHLORIDE
     Indication: PRODUCT USED FOR UNKNOWN INDICATION
     Dosage: 10MG-325MG
     Route: 048

REACTIONS (27)
  - Complication associated with device [Not Recovered/Not Resolved]
  - Pelvic pain [Not Recovered/Not Resolved]
  - Menstrual disorder [Unknown]
  - Weight increased [Unknown]
  - Back disorder [Unknown]
  - Neuropathy peripheral [Unknown]
  - Complication of device removal [Not Recovered/Not Resolved]
  - Back pain [Unknown]
  - Oophorectomy [Unknown]
  - Knee operation [Unknown]
  - Hepatitis C [Recovered/Resolved]
  - Endometriosis ablation [Unknown]
  - Hernia repair [Unknown]
  - Hysterectomy [Unknown]
  - Anxiety [Unknown]
  - Depression [Unknown]
  - Abdominal operation [Unknown]
  - Fibromyalgia [Unknown]
  - Migraine [Unknown]
  - Adenotonsillectomy [Unknown]
  - Insomnia [Unknown]
  - Scar [Unknown]
  - Menstruation irregular [Not Recovered/Not Resolved]
  - Complication associated with device [Unknown]
  - Carpal tunnel syndrome [Unknown]
  - Hepatic cirrhosis [Unknown]
  - Dysmenorrhoea [Not Recovered/Not Resolved]

NARRATIVE: CASE EVENT DATE: 201305
